FAERS Safety Report 11705126 (Version 4)
Quarter: 2016Q4

REPORT INFORMATION
  Report Type: Spontaneous
  Country: DK (occurrence: DK)
  Receive Date: 20151106
  Receipt Date: 20161101
  Transmission Date: 20170206
  Serious: Yes (Other)
  Sender: FDA-Public Use
  Company Number: DK-SA-2015SA173262

PATIENT
  Age: 40 Year
  Sex: Female
  Weight: 75 kg

DRUGS (3)
  1. TAXOTERE [Suspect]
     Active Substance: DOCETAXEL
     Indication: PROPHYLACTIC CHEMOTHERAPY
     Dates: start: 20110620, end: 20110620
  2. TAXOTERE [Suspect]
     Active Substance: DOCETAXEL
     Indication: PROPHYLACTIC CHEMOTHERAPY
     Dosage: 19JUL2011 + 09AUG2011: 132.8 MG.
     Dates: start: 20110719, end: 20110719
  3. TAXOTERE [Suspect]
     Active Substance: DOCETAXEL
     Indication: PROPHYLACTIC CHEMOTHERAPY
     Dosage: 19JUL2011 + 09AUG2011: 132.8 MG.
     Dates: start: 20110809, end: 20110809

REACTIONS (5)
  - Polyneuropathy [Not Recovered/Not Resolved]
  - Insomnia [Unknown]
  - Pain in extremity [Not Recovered/Not Resolved]
  - Impaired work ability [Unknown]
  - Arthralgia [Not Recovered/Not Resolved]

NARRATIVE: CASE EVENT DATE: 2011
